FAERS Safety Report 18513448 (Version 1)
Quarter: 2020Q4

REPORT INFORMATION
  Report Type: Spontaneous
  Country: US (occurrence: US)
  Receive Date: 20201117
  Receipt Date: 20201117
  Transmission Date: 20210114
  Serious: Yes (Other)
  Sender: FDA-Public Use
  Company Number: US-SUNOVION-2020SUN003412

PATIENT
  Age: 72 Year
  Sex: Female

DRUGS (1)
  1. BROVANA [Suspect]
     Active Substance: ARFORMOTEROL TARTRATE
     Dosage: 15 ?G/2 ML SOLUTION
     Route: 055

REACTIONS (3)
  - Upper respiratory tract infection [Unknown]
  - General physical health deterioration [Unknown]
  - Pulmonary embolism [Unknown]
